FAERS Safety Report 9680390 (Version 9)
Quarter: 2014Q4

REPORT INFORMATION
  Report Type: Spontaneous
  Country: BR (occurrence: BR)
  Receive Date: 20131111
  Receipt Date: 20141229
  Transmission Date: 20150529
  Serious: Yes (Hospitalization, Other)
  Sender: FDA-Public Use
  Company Number: BR-SA-2013SA096301

PATIENT
  Age: 79 Year
  Sex: Male
  Weight: 56 kg

DRUGS (21)
  1. CARVEDILOL. [Concomitant]
     Active Substance: CARVEDILOL
     Indication: CARDIAC FAILURE
     Route: 048
  2. METFORMIN [Concomitant]
     Active Substance: METFORMIN HYDROCHLORIDE
     Indication: TYPE 1 DIABETES MELLITUS
     Route: 048
  3. AMLODIPINE [Concomitant]
     Active Substance: AMLODIPINE BESYLATE
     Indication: SALIVA ALTERED
  4. CLIKSTAR [Concomitant]
     Active Substance: CLIKSTAR
     Indication: TYPE 1 DIABETES MELLITUS
     Dates: start: 2013
  5. OMEPRAZOLE. [Concomitant]
     Active Substance: OMEPRAZOLE
     Indication: PROPHYLAXIS
  6. FLORATIL [Concomitant]
     Indication: PROPHYLAXIS
  7. COUMARIN/TROXERUTIN [Concomitant]
     Indication: VEIN DISORDER
  8. BACLON [Concomitant]
     Indication: CARDIAC DISORDER
     Route: 048
  9. ENALAPRIL [Concomitant]
     Active Substance: ENALAPRIL
     Indication: HYPERTENSION
     Route: 048
  10. SIMVASTATIN. [Concomitant]
     Active Substance: SIMVASTATIN
     Indication: BLOOD CHOLESTEROL
  11. SEROQUEL [Concomitant]
     Active Substance: QUETIAPINE FUMARATE
     Indication: SLEEP DISORDER
  12. LANTUS [Suspect]
     Active Substance: INSULIN GLARGINE
     Indication: TYPE 1 DIABETES MELLITUS
     Dosage: FOR APPROXIMATELY 1 AND A HALF YEAR
     Route: 058
     Dates: start: 2013
  13. CLIKSTAR [Concomitant]
     Active Substance: CLIKSTAR
     Indication: TYPE 1 DIABETES MELLITUS
     Dates: start: 201303
  14. CARVEDILOL. [Concomitant]
     Active Substance: CARVEDILOL
     Indication: BLOOD PRESSURE
     Route: 048
  15. LANTUS [Suspect]
     Active Substance: INSULIN GLARGINE
     Indication: TYPE 1 DIABETES MELLITUS
     Dosage: DOSE INCREASED DOSE:60 UNIT(S)
     Route: 058
     Dates: start: 201309
  16. CLIKSTAR [Concomitant]
     Active Substance: CLIKSTAR
     Indication: TYPE 1 DIABETES MELLITUS
     Dates: start: 201309
  17. LASIX [Concomitant]
     Active Substance: FUROSEMIDE
     Indication: DIURETIC THERAPY
     Route: 048
  18. SIMETHICONE [Concomitant]
     Active Substance: DIMETHICONE\SILICON DIOXIDE\SIMETHICONE
     Indication: FLATULENCE
  19. LANTUS [Suspect]
     Active Substance: INSULIN GLARGINE
     Indication: TYPE 1 DIABETES MELLITUS
     Dosage: DOSE:60 UNIT(S)
     Route: 058
     Dates: start: 201303
  20. CLEXANE [Concomitant]
     Active Substance: ENOXAPARIN SODIUM
     Indication: ANTICOAGULANT THERAPY
     Route: 048
  21. CEBRALAT [Concomitant]
     Active Substance: CILOSTAZOL
     Indication: VEIN DISORDER

REACTIONS (27)
  - Blood potassium increased [Recovered/Resolved]
  - Cerebrovascular accident [Not Recovered/Not Resolved]
  - Cognitive disorder [Not Recovered/Not Resolved]
  - Hypoglycaemia [Unknown]
  - Vomiting [Recovered/Resolved]
  - Dysarthria [Not Recovered/Not Resolved]
  - Urinary tract infection [Not Recovered/Not Resolved]
  - Transient ischaemic attack [Not Recovered/Not Resolved]
  - Decubitus ulcer [Recovered/Resolved]
  - Hypokalaemia [Unknown]
  - Hyperglycaemia [Not Recovered/Not Resolved]
  - Fluid retention [Recovering/Resolving]
  - Depressed level of consciousness [Not Recovered/Not Resolved]
  - Vascular dementia [Not Recovered/Not Resolved]
  - Bedridden [Not Recovered/Not Resolved]
  - Speech disorder [Not Recovered/Not Resolved]
  - Hemiparesis [Not Recovered/Not Resolved]
  - Diabetes mellitus inadequate control [Recovering/Resolving]
  - Anaemia [Not Recovered/Not Resolved]
  - Hyponatraemia [Recovered/Resolved]
  - Cerebrovascular accident [Recovered/Resolved]
  - Renal impairment [Not Recovered/Not Resolved]
  - Poor peripheral circulation [Not Recovered/Not Resolved]
  - Exostosis [Not Recovered/Not Resolved]
  - Peripheral swelling [Not Recovered/Not Resolved]
  - Necrosis [Not Recovered/Not Resolved]
  - Leg amputation [Not Recovered/Not Resolved]

NARRATIVE: CASE EVENT DATE: 201310
